FAERS Safety Report 21503673 (Version 1)
Quarter: 2022Q4

REPORT INFORMATION
  Report Type: Spontaneous
  Country: US (occurrence: None)
  Receive Date: 20221024
  Receipt Date: 20221024
  Transmission Date: 20230113
  Serious: Yes (Hospitalization)
  Sender: FDA-Public Use
  Company Number: None

PATIENT
  Sex: Female

DRUGS (7)
  1. PROLIA [Suspect]
     Active Substance: DENOSUMAB
     Indication: Senile osteoporosis
     Dosage: 60 MG/M;  SUCUTANESOS??INJECT UNDER THE SKIN (SUBCUTANEOUS INJECTION) EVERY 6 MONTHS
     Route: 058
     Dates: start: 20210611
  2. AMLODIPINE TAB [Concomitant]
  3. LOSARTAN POT TAB [Concomitant]
  4. METOPROL TAR TAB [Concomitant]
  5. OMEPRAZOLE TAB [Concomitant]
  6. SIMVASTATIN [Concomitant]
     Active Substance: SIMVASTATIN
  7. TRAVATAN Z DRO [Concomitant]

REACTIONS (3)
  - Hyponatraemia [None]
  - Peripheral swelling [None]
  - Disorientation [None]
